FAERS Safety Report 21443656 (Version 3)
Quarter: 2023Q2

REPORT INFORMATION
  Report Type: Spontaneous
  Country: US (occurrence: US)
  Receive Date: 20221012
  Receipt Date: 20230403
  Transmission Date: 20230722
  Serious: No
  Sender: FDA-Public Use
  Company Number: US-NOVARTISTESTPH-NVSC2022US229315

PATIENT
  Sex: Male

DRUGS (1)
  1. ILARIS [Suspect]
     Active Substance: CANAKINUMAB
     Indication: Abdominal discomfort
     Dosage: 300 MG, QMO
     Route: 058
     Dates: start: 20220917

REACTIONS (2)
  - Abdominal discomfort [Unknown]
  - Product use in unapproved indication [Unknown]
